FAERS Safety Report 6439484-6 (Version None)
Quarter: 2009Q4

REPORT INFORMATION
  Report Type: 
  Country: None (occurrence: None)
  Receive Date: 20091113
  Receipt Date: 20091109
  Transmission Date: 20100525
  Serious: Yes (Life-Threatening, Hospitalization, Disabling)
  Sender: FDA-Public Use
  Company Number: JP-ASTRAZENECA-2009SE22298

PATIENT
  Age: 51 Year
  Sex: Female
  Weight: 66 kg

DRUGS (5)
  1. NOLVADEX [Suspect]
     Indication: BREAST CANCER
     Dosage: NUMBER OF SEPARATE DOSES UNKNOWN, 20 MG/DAY
     Route: 048
     Dates: start: 20051201, end: 20081001
  2. NOLVADEX [Suspect]
     Route: 048
     Dates: start: 20090401
  3. EPIRUBICIN HYDROCHLORIDE [Suspect]
     Dosage: 90MG/M2
     Route: 041
     Dates: start: 20050615, end: 20050824
  4. CYCLOPHOSPHAMIDE [Suspect]
     Dosage: 600MG/M2
     Route: 041
     Dates: start: 20050615, end: 20050824
  5. PACLITAXEL [Suspect]
     Dosage: 80MG/M2
     Route: 041
     Dates: start: 20050914, end: 20051207

REACTIONS (2)
  - ACUTE PROMYELOCYTIC LEUKAEMIA [None]
  - DISSEMINATED INTRAVASCULAR COAGULATION [None]
